FAERS Safety Report 4309275-0 (Version None)
Quarter: 2004Q1

REPORT INFORMATION
  Report Type: 
  Country: None (occurrence: None)
  Receive Date: 20040301
  Receipt Date: 20040220
  Transmission Date: 20041129
  Serious: Yes (Hospitalization)
  Sender: FDA-Public Use
  Company Number: CAP04000055

PATIENT
  Age: 85 Year
  Sex: Female

DRUGS (8)
  1. ACTONEL [Suspect]
     Indication: OSTEOPOROSIS POSTMENOPAUSAL
     Dosage: 35 MG ONCE WEEKLY, ORAL
     Route: 048
     Dates: start: 20030826
  2. SERAX [Concomitant]
  3. DRUG NOS [Concomitant]
  4. DITROPAN [Concomitant]
  5. SENOKOT [Concomitant]
  6. COLACE       (DOCUSATE SODIUM) [Concomitant]
  7. QUESTRAN [Concomitant]
  8. LACTAID (TILACTASE) [Concomitant]

REACTIONS (1)
  - FAECALOMA [None]
